FAERS Safety Report 24693818 (Version 1)
Quarter: 2024Q4

REPORT INFORMATION
  Report Type: Spontaneous
  Country: US (occurrence: US)
  Receive Date: 20241204
  Receipt Date: 20241204
  Transmission Date: 20250115
  Serious: No
  Sender: Steriscience PTE
  Company Number: US-STERISCIENCE B.V.-2024-ST-000350

PATIENT
  Age: 39 Year
  Sex: Male

DRUGS (6)
  1. BUPIVACAINE [Suspect]
     Active Substance: BUPIVACAINE
     Indication: Pruritus
     Dosage: BILATERAL GONB, 0.25% BUPIVACAINE 1ML WITH THE NEEDLE DIRECTED SUPERIORLY, 1ML WITH THE NEEDLE DIREC
  2. AMITRIPTYLINE [Concomitant]
     Active Substance: AMITRIPTYLINE
     Indication: Pruritus
     Dosage: UNK, OVER THE NEXT 12 MONTHS
     Route: 065
  3. LIDOCAINE [Concomitant]
     Active Substance: LIDOCAINE
     Indication: Pruritus
     Dosage: UNK, OVER THE NEXT 12 MONTHS
     Route: 061
  4. KETAMINE HYDROCHLORIDE [Concomitant]
     Active Substance: KETAMINE HYDROCHLORIDE
     Indication: Pruritus
     Dosage: UNK, OVER THE NEXT 12 MONTHS
     Route: 065
  5. VALACYCLOVIR [Concomitant]
     Active Substance: VALACYCLOVIR HYDROCHLORIDE
     Indication: Pruritus
     Dosage: UNK, OVER THE NEXT 12 MONTHS
     Route: 065
  6. KETOCONAZOLE [Concomitant]
     Active Substance: KETOCONAZOLE
     Indication: Pruritus
     Dosage: UNK, SHAMPOO, OVER THE NEXT 12 MONTHS
     Route: 061

REACTIONS (1)
  - Off label use [Unknown]
